FAERS Safety Report 16292568 (Version 1)
Quarter: 2019Q2

REPORT INFORMATION
  Report Type: Other
  Country: US (occurrence: US)
  Receive Date: 20190509
  Receipt Date: 20190509
  Transmission Date: 20190711
  Serious: No
  Sender: FDA-Public Use
  Company Number: US-ALKERMES INC.-ALK-2018-003310

PATIENT
  Age: 56 Year
  Sex: Female
  Weight: 71.2 kg

DRUGS (2)
  1. VIVITROL [Suspect]
     Active Substance: NALTREXONE
     Indication: ALCOHOLISM
  2. VIVITROL [Suspect]
     Active Substance: NALTREXONE
     Indication: ANTIDEPRESSANT THERAPY
     Dosage: 380 MG, QMO
     Route: 030
     Dates: start: 20170510

REACTIONS (3)
  - Fatigue [Unknown]
  - Increased appetite [Unknown]
  - Off label use [Unknown]

NARRATIVE: CASE EVENT DATE: 20170510
